FAERS Safety Report 7090289-5 (Version None)
Quarter: 2010Q4

REPORT INFORMATION
  Report Type: 
  Country: None (occurrence: None)
  Receive Date: 20101105
  Receipt Date: 20101105
  Transmission Date: 20110411
  Serious: Yes (Other)
  Sender: FDA-Public Use
  Company Number: None

PATIENT
  Age: 58 Year
  Sex: Male
  Weight: 99.7913 kg

DRUGS (2)
  1. CORTAID [Suspect]
  2. CORTIZONE 10 [Suspect]

REACTIONS (2)
  - CUSHING'S SYNDROME [None]
  - EPIDURAL LIPOMATOSIS [None]
